FAERS Safety Report 8302148-8 (Version None)
Quarter: 2012Q2

REPORT INFORMATION
  Report Type: 
  Country: None (occurrence: None)
  Receive Date: 20120420
  Receipt Date: 20120405
  Transmission Date: 20120825
  Serious: Yes (Life-Threatening, Hospitalization, Other)
  Sender: FDA-Public Use
  Company Number: US-SHIONOGI, INC-2011000205

PATIENT

DRUGS (8)
  1. SOLU-MEDROL [Suspect]
     Dosage: 125 MG, UNK
     Route: 042
     Dates: start: 20111017, end: 20111018
  2. CARDIZEM [Concomitant]
     Dosage: UNK
     Route: 048
  3. LORTAB [Concomitant]
     Dosage: 10 MG, QID
  4. WELLBUTRIN [Concomitant]
     Dosage: 150 MG, BID
  5. XANAX [Concomitant]
     Dosage: 1 MG, TID
  6. NEURONTIN [Concomitant]
     Dosage: 300 MG, BID
  7. EPINEPHRINE [Suspect]
     Dosage: UNK
  8. EPINEPHRINE [Suspect]
     Dosage: UNK
     Dates: start: 20111016, end: 20111016

REACTIONS (17)
  - PNEUMONIA [None]
  - CARDIOMEGALY [None]
  - CHEST PAIN [None]
  - HYPERGLYCAEMIA [None]
  - OROPHARYNGEAL PAIN [None]
  - INTERSTITIAL LUNG DISEASE [None]
  - HYPERSENSITIVITY [None]
  - DYSPNOEA [None]
  - ANAEMIA [None]
  - NAUSEA [None]
  - DEVICE FAILURE [None]
  - PRODUCT QUALITY ISSUE [None]
  - ABDOMINAL PAIN [None]
  - HEADACHE [None]
  - ANXIETY [None]
  - BACK PAIN [None]
  - STAPHYLOCOCCAL BACTERAEMIA [None]
